FAERS Safety Report 6632324-1 (Version None)
Quarter: 2010Q1

REPORT INFORMATION
  Report Type: 
  Country: None (occurrence: None)
  Receive Date: 20100312
  Receipt Date: 20100305
  Transmission Date: 20100710
  Serious: Yes (Other)
  Sender: FDA-Public Use
  Company Number: B0637937A

PATIENT
  Age: 40 Year
  Sex: Male

DRUGS (2)
  1. AVODART [Suspect]
     Indication: ALOPECIA
     Dosage: 500MCG PER DAY
     Route: 048
     Dates: start: 20080101
  2. FINASTERIDE [Suspect]
     Indication: ALOPECIA

REACTIONS (3)
  - DARK CIRCLES UNDER EYES [None]
  - DYSGEUSIA [None]
  - SKIN ATROPHY [None]
